FAERS Safety Report 4803158-5 (Version None)
Quarter: 2005Q4

REPORT INFORMATION
  Report Type: 
  Country: None (occurrence: None)
  Receive Date: 20051019
  Receipt Date: 20050928
  Transmission Date: 20060501
  Serious: Yes (Hospitalization, Other)
  Sender: FDA-Public Use
  Company Number: JP-NOVOPROD-247303

PATIENT
  Age: 80 Year
  Sex: Female
  Weight: 39 kg

DRUGS (3)
  1. GASPORT [Concomitant]
     Dosage: 20 MG, UNK
     Dates: start: 20040204
  2. NOVORAPID 30 MIX CHU FLEXPEN [Suspect]
     Indication: INSULIN-REQUIRING TYPE II DIABETES MELLITUS
     Dosage: 30 IU, (20-0-10)
     Route: 058
     Dates: start: 20041006
  3. NORVASC [Concomitant]
     Dosage: 5 MG, UNK
     Route: 048
     Dates: start: 20040204

REACTIONS (3)
  - DEPRESSED LEVEL OF CONSCIOUSNESS [None]
  - FALL [None]
  - HYPOGLYCAEMIA [None]
